FAERS Safety Report 5612501-9 (Version None)
Quarter: 2008Q1

REPORT INFORMATION
  Report Type: 
  Country: None (occurrence: None)
  Receive Date: 20080204
  Receipt Date: 20080131
  Transmission Date: 20080703
  Serious: Yes (Death)
  Sender: FDA-Public Use
  Company Number: CA-BRISTOL-MYERS SQUIBB COMPANY-14000624

PATIENT
  Age: 83 Year
  Sex: Female

DRUGS (8)
  1. ORENCIA [Suspect]
     Indication: RHEUMATOID ARTHRITIS
     Dosage: THERAPY DATES: 16AUG07, 31AUG07, 12SEP07, 10OCT07, 07NOV07
     Route: 042
     Dates: start: 20070416, end: 20071107
  2. ATENOLOL [Concomitant]
  3. COZAAR [Concomitant]
  4. INDAPAMIDE [Concomitant]
  5. POTASSIUM CHLORIDE [Concomitant]
  6. PREDNISONE TAB [Concomitant]
  7. MTX [Concomitant]
  8. FOSAMAX [Concomitant]

REACTIONS (1)
  - ACUTE MYOCARDIAL INFARCTION [None]
